FAERS Safety Report 12520364 (Version 1)
Quarter: 2016Q3

REPORT INFORMATION
  Report Type: Spontaneous
  Country: DE (occurrence: DE)
  Receive Date: 20160701
  Receipt Date: 20160701
  Transmission Date: 20161109
  Serious: Yes (Life-Threatening)
  Sender: FDA-Public Use
  Company Number: DE-ACCORD-042017

PATIENT
  Age: 75 Year
  Sex: Male
  Weight: 71 kg

DRUGS (1)
  1. PACLITAXEL/PACLITAXEL LIPOSOME [Suspect]
     Active Substance: PACLITAXEL
     Indication: METASTATIC BRONCHIAL CARCINOMA
     Route: 042
     Dates: start: 20160601

REACTIONS (8)
  - Defaecation urgency [Recovering/Resolving]
  - Hypotension [Recovering/Resolving]
  - Myocardial ischaemia [Recovering/Resolving]
  - Flushing [Recovering/Resolving]
  - Restlessness [Recovering/Resolving]
  - Cough [Recovering/Resolving]
  - Chest pain [Recovering/Resolving]
  - Micturition urgency [Recovering/Resolving]

NARRATIVE: CASE EVENT DATE: 20160601
